FAERS Safety Report 6423595-5 (Version None)
Quarter: 2009Q4

REPORT INFORMATION
  Report Type: 
  Country: None (occurrence: None)
  Receive Date: 20091102
  Receipt Date: 20091021
  Transmission Date: 20100525
  Serious: Yes (Other)
  Sender: FDA-Public Use
  Company Number: US-JNJCH-2009027953

PATIENT
  Age: 8 Month
  Sex: Female

DRUGS (1)
  1. DESITIN MAXIMUM STRENGTH ORIGINAL PASTE [Suspect]
     Indication: DERMATITIS DIAPER
     Dosage: TEXT:UNKNOWN
     Route: 061

REACTIONS (1)
  - CONVULSION [None]
